FAERS Safety Report 23185548 (Version 3)
Quarter: 2023Q4

REPORT INFORMATION
  Report Type: Report from Study
  Country: IN (occurrence: IN)
  Receive Date: 20231115
  Receipt Date: 20231201
  Transmission Date: 20240110
  Serious: Yes (Hospitalization, Other)
  Sender: FDA-Public Use
  Company Number: IN-002147023-NVSC2021IN292979

PATIENT
  Age: 68 Year
  Sex: Male

DRUGS (10)
  1. TASIGNA [Suspect]
     Active Substance: NILOTINIB
     Indication: Chronic myeloid leukaemia
     Dosage: 400 MG, BID
     Route: 065
     Dates: start: 20171109, end: 202111
  2. TASIGNA [Suspect]
     Active Substance: NILOTINIB
     Dosage: 200 MG, BID
     Route: 048
     Dates: start: 20171110
  3. TASIGNA [Suspect]
     Active Substance: NILOTINIB
     Dosage: 200 MG, BID
     Route: 065
     Dates: start: 202111
  4. TASIGNA [Suspect]
     Active Substance: NILOTINIB
     Dosage: 200 MG, BID
     Route: 065
     Dates: start: 20220228
  5. TASIGNA [Suspect]
     Active Substance: NILOTINIB
     Dosage: 200 MG, BID
     Route: 065
     Dates: start: 20220620
  6. TASIGNA [Suspect]
     Active Substance: NILOTINIB
     Dosage: 200 MG, BID
     Route: 065
     Dates: start: 20220926
  7. TASIGNA [Suspect]
     Active Substance: NILOTINIB
     Dosage: 200 MG, BID
     Route: 065
     Dates: start: 20230410
  8. TASIGNA [Suspect]
     Active Substance: NILOTINIB
     Dosage: 200 MG, BID
     Route: 048
     Dates: start: 20230712
  9. TASIGNA [Suspect]
     Active Substance: NILOTINIB
     Dosage: UNK
     Route: 048
  10. CILACAR C [Concomitant]
     Indication: Hypertension
     Dosage: UNK
     Route: 065

REACTIONS (4)
  - Myocardial infarction [Recovered/Resolved]
  - Multiple fractures [Not Recovered/Not Resolved]
  - Renal disorder [Recovered/Resolved]
  - Drug intolerance [Unknown]

NARRATIVE: CASE EVENT DATE: 20180901
